FAERS Safety Report 7553558-8 (Version None)
Quarter: 2011Q2

REPORT INFORMATION
  Report Type: 
  Country: None (occurrence: None)
  Receive Date: 20110617
  Receipt Date: 20110107
  Transmission Date: 20111010
  Serious: Yes (Hospitalization, Other)
  Sender: FDA-Public Use
  Company Number: US-BAYER-201014291NA

PATIENT
  Age: 25 Year
  Sex: Female
  Weight: 65.455 kg

DRUGS (14)
  1. IBUPROFEN [Concomitant]
     Route: 065
     Dates: start: 20080201, end: 20080201
  2. ZOFRAN [Concomitant]
     Route: 065
     Dates: start: 20080201, end: 20080201
  3. ALIMENTARY TRACT AND METABOLISM [Concomitant]
  4. IRON SUPPLEMENT [Concomitant]
     Indication: ANAEMIA
     Route: 065
     Dates: start: 20080201
  5. SALINE SOLUTIONS [Concomitant]
     Dosage: 120 ML/HOUR FOR 12 HOURS THEN 80ML/HR
     Route: 042
     Dates: start: 20080201, end: 20080201
  6. TRYPTOPHAN, L- [Concomitant]
     Dosage: UNK
     Dates: start: 20080111
  7. MICRONOR [Concomitant]
     Indication: DYSMENORRHOEA
     Route: 048
     Dates: start: 20080408
  8. AZITHROMYCIN [Concomitant]
     Dosage: UNK
     Dates: start: 20080111
  9. KLONOPIN [Concomitant]
     Dosage: DAILY DOSE 1 MG
     Dates: start: 20070601
  10. FIORINAL W/CODEINE [Concomitant]
     Dosage: UNK
     Dates: start: 20070601
  11. YAZ [Suspect]
     Indication: VAGINAL HAEMORRHAGE
     Route: 048
     Dates: start: 20071116, end: 20080217
  12. YASMIN [Suspect]
     Indication: VAGINAL HAEMORRHAGE
     Route: 048
     Dates: start: 20070608, end: 20071116
  13. PROGESTERONE [Concomitant]
  14. PHENERGAN HCL [Concomitant]
     Dosage: DAILY DOSE 25 MG
     Dates: start: 20070601

REACTIONS (4)
  - PLEURITIC PAIN [None]
  - PULMONARY EMBOLISM [None]
  - DYSPNOEA [None]
  - DEEP VEIN THROMBOSIS [None]
